FAERS Safety Report 14924914 (Version 4)
Quarter: 2018Q2

REPORT INFORMATION
  Report Type: Report from Study
  Country: US (occurrence: US)
  Receive Date: 20180522
  Receipt Date: 20180629
  Transmission Date: 20180711
  Serious: Yes (Other)
  Sender: FDA-Public Use
  Company Number: US-PFIZER INC-2018173736

PATIENT
  Age: 77 Year
  Sex: Female

DRUGS (3)
  1. IBRANCE [Suspect]
     Active Substance: PALBOCICLIB
     Indication: BREAST CANCER FEMALE
     Dosage: 125 MG, CYCLIC (DAILY; 3 WEEKS ON/1 WEEK OFF/ DAILY FOR 21 DAYS AND OFF 7 DAYS)
     Route: 048
     Dates: start: 20180422, end: 20180512
  2. IBRANCE [Suspect]
     Active Substance: PALBOCICLIB
     Dosage: 100 MG, CYCLIC (DAILY FOR 21 DAYS AND OFF 7 DAYS)
     Route: 048
     Dates: start: 20180527
  3. ARIMIDEX [Concomitant]
     Active Substance: ANASTROZOLE
     Dosage: UNK, DAILY

REACTIONS (11)
  - Cataract [Unknown]
  - Decreased appetite [Unknown]
  - Weight decreased [Unknown]
  - Increased appetite [Recovering/Resolving]
  - Fatigue [Not Recovered/Not Resolved]
  - Bone marrow failure [Unknown]
  - Scar [Unknown]
  - Diarrhoea [Unknown]
  - White blood cell count decreased [Unknown]
  - Visual impairment [Unknown]
  - Drug dose omission [Unknown]

NARRATIVE: CASE EVENT DATE: 2018
